FAERS Safety Report 5079656-9 (Version None)
Quarter: 2006Q3

REPORT INFORMATION
  Report Type: 
  Country: None (occurrence: None)
  Receive Date: 20060814
  Receipt Date: 20060731
  Transmission Date: 20061208
  Serious: Yes (Death, Hospitalization)
  Sender: FDA-Public Use
  Company Number: DE-ABBOTT-06P-062-0339440-00

PATIENT
  Sex: Male

DRUGS (14)
  1. HUMIRA [Suspect]
     Indication: RHEUMATOID ARTHRITIS
     Route: 058
     Dates: start: 20041101, end: 20050217
  2. HUMIRA [Suspect]
     Dates: start: 20050324, end: 20050324
  3. ALLOPURINOL [Concomitant]
     Indication: DRUG USE FOR UNKNOWN INDICATION
  4. ALLOPURINOL [Concomitant]
  5. PREDNISONE TAB [Concomitant]
     Indication: DRUG USE FOR UNKNOWN INDICATION
  6. METAMIZOLE [Concomitant]
     Indication: PAIN
  7. FENTANYL [Concomitant]
     Indication: PAIN
  8. LORAZEPAM [Concomitant]
     Indication: DRUG USE FOR UNKNOWN INDICATION
  9. HALOPERIDOL [Concomitant]
     Indication: DRUG USE FOR UNKNOWN INDICATION
  10. PANTOPRAZOLE SODIUM [Concomitant]
     Indication: DRUG USE FOR UNKNOWN INDICATION
  11. VIGANTOLETTEN [Concomitant]
     Indication: DRUG USE FOR UNKNOWN INDICATION
  12. DIGITOXIN [Concomitant]
     Indication: DRUG USE FOR UNKNOWN INDICATION
  13. METOPROLOL ZOK [Concomitant]
     Indication: DRUG USE FOR UNKNOWN INDICATION
  14. NULYTELY [Concomitant]
     Indication: DRUG USE FOR UNKNOWN INDICATION

REACTIONS (16)
  - AGITATION [None]
  - ANURIA [None]
  - ARTHROPATHY [None]
  - BLADDER CANCER RECURRENT [None]
  - CARDIAC FAILURE [None]
  - CARDIOVASCULAR DISORDER [None]
  - DEHYDRATION [None]
  - DISORIENTATION [None]
  - DYSPNOEA [None]
  - GENERAL PHYSICAL HEALTH DETERIORATION [None]
  - PAIN [None]
  - PNEUMONIA [None]
  - PULMONARY OEDEMA [None]
  - RENAL FAILURE [None]
  - SHOCK [None]
  - URINARY TRACT INFECTION [None]
